FAERS Safety Report 4884369-X (Version None)
Quarter: 2006Q1

REPORT INFORMATION
  Report Type: 
  Country: None (occurrence: None)
  Receive Date: 20060117
  Receipt Date: 20060117
  Transmission Date: 20060701
  Serious: Yes (Life-Threatening, Hospitalization, Disabling, Other)
  Sender: FDA-Public Use
  Company Number: None

PATIENT
  Age: 50 Year
  Sex: Female
  Weight: 54.4316 kg

DRUGS (2)
  1. PROLIXIN [Suspect]
     Indication: ALCOHOL DETOXIFICATION
     Dosage: IM X ONE NOT INFORMED OF DOSE
     Route: 030
  2. CYMBALTA [Suspect]
     Indication: DEPRESSION

REACTIONS (4)
  - ABASIA [None]
  - BLOOD PRESSURE INCREASED [None]
  - FALL [None]
  - WHEELCHAIR USER [None]
